FAERS Safety Report 16725162 (Version 1)
Quarter: 2019Q4

REPORT INFORMATION
  Report Type: Spontaneous
  Country: US (occurrence: US)
  Receive Date: 20190820
  Receipt Date: 20190820
  Transmission Date: 20200122
  Serious: No
  Sender: FDA-Public Use
  Company Number: None

PATIENT
  Age: 36 Year
  Sex: Male
  Weight: 109.6 kg

DRUGS (4)
  1. DIVALPROEX ER [Concomitant]
     Active Substance: DIVALPROEX SODIUM
     Dates: start: 20190522
  2. ACETAMINOPHEN. [Concomitant]
     Active Substance: ACETAMINOPHEN
     Dates: start: 20190717, end: 20190816
  3. VENLAFAXINE HCL [Suspect]
     Active Substance: VENLAFAXINE HYDROCHLORIDE
     Indication: BIPOLAR DISORDER
     Route: 048
     Dates: start: 20190523, end: 20190819
  4. IBUPROFEN. [Concomitant]
     Active Substance: IBUPROFEN
     Dates: start: 20190812, end: 20190815

REACTIONS (5)
  - Dizziness [None]
  - Paraesthesia [None]
  - Product substitution issue [None]
  - Withdrawal syndrome [None]
  - Feeling abnormal [None]

NARRATIVE: CASE EVENT DATE: 20190620
